FAERS Safety Report 10147004 (Version 1)
Quarter: 2014Q2

REPORT INFORMATION
  Report Type: Spontaneous
  Country: FR (occurrence: FR)
  Receive Date: 20140501
  Receipt Date: 20140501
  Transmission Date: 20141212
  Serious: Yes (Hospitalization)
  Sender: FDA-Public Use
  Company Number: FR-GLAXOSMITHKLINE-B0988858A

PATIENT
  Age: 63 Year
  Sex: Female

DRUGS (3)
  1. ZINNAT [Suspect]
     Indication: SINUS DISORDER
     Route: 048
     Dates: start: 2002
  2. HYTACAND [Concomitant]
     Route: 065
  3. LEVOTHYROX [Concomitant]
     Route: 065

REACTIONS (5)
  - Anaphylactic reaction [Recovered/Resolved]
  - Loss of consciousness [Recovered/Resolved]
  - Nausea [Recovered/Resolved]
  - Malaise [Recovered/Resolved]
  - Abdominal pain [Recovered/Resolved]
